FAERS Safety Report 14394188 (Version 1)
Quarter: 2018Q1

REPORT INFORMATION
  Report Type: Spontaneous
  Country: US (occurrence: US)
  Receive Date: 20180116
  Receipt Date: 20180116
  Transmission Date: 20180509
  Serious: No
  Sender: FDA-Public Use
  Company Number: US-REGENERON PHARMACEUTICALS, INC.-2017-19733

PATIENT

DRUGS (5)
  1. AVASTIN [Suspect]
     Active Substance: BEVACIZUMAB
     Indication: CHOROIDAL NEOVASCULARISATION
  2. LUCENTIS [Concomitant]
     Active Substance: RANIBIZUMAB
     Indication: NEOVASCULAR AGE-RELATED MACULAR DEGENERATION
  3. EYLEA [Suspect]
     Active Substance: AFLIBERCEPT
     Indication: NEOVASCULAR AGE-RELATED MACULAR DEGENERATION
     Dosage: UNK, EVERY 12 WEEKS, LEFT EYE
     Route: 031
     Dates: start: 20140512
  4. EYLEA [Suspect]
     Active Substance: AFLIBERCEPT
     Indication: CHOROIDAL NEOVASCULARISATION
     Dosage: UNK, EVERY 12 WEEKS, LEFT EYE
     Route: 031
     Dates: start: 20170424, end: 20170424
  5. AVASTIN [Suspect]
     Active Substance: BEVACIZUMAB
     Indication: NEOVASCULAR AGE-RELATED MACULAR DEGENERATION
     Dosage: UNK, LEFT EYE
     Dates: start: 20170717, end: 20170717

REACTIONS (1)
  - Wrong drug administered [Recovered/Resolved]

NARRATIVE: CASE EVENT DATE: 20170717
